FAERS Safety Report 13993822 (Version 1)
Quarter: 2017Q3

REPORT INFORMATION
  Report Type: Spontaneous
  Country: BE (occurrence: BE)
  Receive Date: 20170920
  Receipt Date: 20170920
  Transmission Date: 20171128
  Serious: Yes (Other)
  Sender: FDA-Public Use
  Company Number: BE-BAYER-2017-176073

PATIENT
  Age: 52 Year
  Sex: Male

DRUGS (2)
  1. DENOSUMAB [Concomitant]
     Active Substance: DENOSUMAB
     Dosage: UNK
  2. XOFIGO [Suspect]
     Active Substance: RADIUM RA-223 DICHLORIDE
     Dosage: TOTAL OF 6 CURES
     Dates: end: 201607

REACTIONS (5)
  - Pancytopenia [None]
  - Metastases to meninges [None]
  - Transfusion [None]
  - Metastases to lymph nodes [None]
  - Pancytopenia [None]

NARRATIVE: CASE EVENT DATE: 201608
